FAERS Safety Report 4999174-3 (Version None)
Quarter: 2006Q2

REPORT INFORMATION
  Report Type: 
  Country: None (occurrence: None)
  Receive Date: 20060509
  Receipt Date: 20060502
  Transmission Date: 20061013
  Serious: Yes (Other)
  Sender: FDA-Public Use
  Company Number: 2006040862

PATIENT
  Sex: Male
  Weight: 64.4108 kg

DRUGS (5)
  1. ACCUPRIL [Suspect]
     Indication: HYPERTENSION
     Dates: start: 19970101
  2. PROZAC [Suspect]
     Indication: DEPRESSION
     Dates: start: 20060101, end: 20060101
  3. ACETYLSALICYLIC ACID SRT [Concomitant]
  4. FOLIC ACID [Concomitant]
  5. PRAVACHOL [Concomitant]

REACTIONS (8)
  - ANOREXIA [None]
  - BLOOD CREATININE INCREASED [None]
  - BLOOD UREA INCREASED [None]
  - CONDITION AGGRAVATED [None]
  - DEPRESSION [None]
  - HYPERTENSION [None]
  - RENAL DISORDER [None]
  - WEIGHT DECREASED [None]
